FAERS Safety Report 8515409-4 (Version None)
Quarter: 2012Q3

REPORT INFORMATION
  Report Type: 
  Country: None (occurrence: None)
  Receive Date: 20120717
  Receipt Date: 20120711
  Transmission Date: 20120928
  Serious: Yes (Hospitalization)
  Sender: FDA-Public Use
  Company Number: US-B.I. PHARMACEUTICALS,INC./RIDGEFIELD-2012-BP-15501BP

PATIENT
  Age: 70 Year
  Sex: Male

DRUGS (7)
  1. GABAPENTIN [Concomitant]
     Indication: PAIN
  2. UNSPECIFIED ACE INHIBITOR [Concomitant]
     Indication: PRODUCT USED FOR UNKNOWN INDICATION
  3. LOPRESSOR [Concomitant]
     Indication: CARDIAC DISORDER
  4. METHADONE HCL [Concomitant]
     Indication: PAIN
  5. PRADAXA [Suspect]
     Indication: ATRIAL FIBRILLATION
  6. ALLOPURINOL [Concomitant]
     Indication: BLOOD URIC ACID ABNORMAL
  7. CYMBALTA [Concomitant]
     Indication: NEUROPATHY PERIPHERAL

REACTIONS (5)
  - SHOCK HAEMORRHAGIC [None]
  - FALL [None]
  - SPLENIC RUPTURE [None]
  - ANAEMIA [None]
  - ASTHENIA [None]
